FAERS Safety Report 11072265 (Version 1)
Quarter: 2015Q2

REPORT INFORMATION
  Report Type: Spontaneous
  Country: GB (occurrence: GB)
  Receive Date: 20150428
  Receipt Date: 20150428
  Transmission Date: 20150821
  Serious: Yes (Other)
  Sender: FDA-Public Use
  Company Number: GB-WATSON-2015-08619

PATIENT
  Age: 47 Year
  Sex: Male
  Weight: 94.34 kg

DRUGS (2)
  1. ALLOPURINOL (UNKNOWN) [Suspect]
     Active Substance: ALLOPURINOL
     Dosage: 100 MG, UNKNOWN
     Route: 048
     Dates: start: 20100101, end: 2014
  2. ALLOPURINOL (UNKNOWN) [Suspect]
     Active Substance: ALLOPURINOL
     Indication: GOUT
     Dosage: 200 MG, UNKNOWN
     Route: 048
     Dates: start: 2014, end: 20150330

REACTIONS (8)
  - Hypersensitivity [Recovering/Resolving]
  - Lower respiratory tract infection [Unknown]
  - Cough [Not Recovered/Not Resolved]
  - Skin irritation [Unknown]
  - Onychoclasis [Unknown]
  - Skin burning sensation [Recovering/Resolving]
  - Dermatitis allergic [Recovering/Resolving]
  - Pruritus [Recovering/Resolving]

NARRATIVE: CASE EVENT DATE: 201411
